FAERS Safety Report 11666067 (Version 1)
Quarter: 2015Q4

REPORT INFORMATION
  Report Type: Spontaneous
  Country: US (occurrence: US)
  Receive Date: 20151027
  Receipt Date: 20151027
  Transmission Date: 20160304
  Serious: No
  Sender: FDA-Public Use
  Company Number: US-ELI_LILLY_AND_COMPANY-US200912001153

PATIENT
  Age: 80 Year
  Sex: Female
  Weight: 66.21 kg

DRUGS (3)
  1. VITAMIN D [Concomitant]
     Active Substance: CHOLECALCIFEROL
  2. FORTEO [Suspect]
     Active Substance: TERIPARATIDE
     Indication: OSTEOPOROSIS
     Dosage: 20 UG, DAILY (1/D)
  3. CALCIUM [Concomitant]
     Active Substance: CALCIUM

REACTIONS (3)
  - Incorrect product storage [Unknown]
  - Living in residential institution [Not Recovered/Not Resolved]
  - Bone density decreased [Unknown]
